FAERS Safety Report 19136189 (Version 1)
Quarter: 2021Q2

REPORT INFORMATION
  Report Type: Spontaneous
  Country: FR (occurrence: FR)
  Receive Date: 20210414
  Receipt Date: 20210414
  Transmission Date: 20210717
  Serious: Yes (Death)
  Sender: FDA-Public Use
  Company Number: NVSC2021FR082609

PATIENT
  Age: 65 Year
  Sex: Male

DRUGS (5)
  1. BROMAZEPAM [Concomitant]
     Active Substance: BROMAZEPAM
     Indication: ANXIETY
     Dosage: 1.12 MG,QD
     Route: 048
     Dates: end: 20210317
  2. RISPERIDONE. [Suspect]
     Active Substance: RISPERIDONE
     Indication: CHILDHOOD PSYCHOSIS
     Dosage: 3 MG,QD
     Route: 048
     Dates: end: 20210316
  3. ULTIBRO BREEZHALER [Concomitant]
     Active Substance: GLYCOPYRRONIUM\INDACATEROL
     Indication: CHRONIC OBSTRUCTIVE PULMONARY DISEASE
     Dosage: 1 DF,QD (POUDRE POUR INHALATION EN GELULE)
     Route: 055
     Dates: end: 20210316
  4. TERCIAN [Suspect]
     Active Substance: CYAMEMAZINE
     Indication: CHILDHOOD PSYCHOSIS
     Dosage: 1 DF,QD
     Route: 048
     Dates: end: 20210317
  5. QUETIAPINE. [Suspect]
     Active Substance: QUETIAPINE
     Indication: CHILDHOOD PSYCHOSIS
     Dosage: 900 MG,QD
     Route: 048
     Dates: start: 20210302, end: 20210317

REACTIONS (3)
  - Laryngospasm [Fatal]
  - Laryngeal dyspnoea [Fatal]
  - Pneumonia aspiration [Fatal]

NARRATIVE: CASE EVENT DATE: 202103
